FAERS Safety Report 23732832 (Version 2)
Quarter: 2024Q2

REPORT INFORMATION
  Report Type: Spontaneous
  Country: US (occurrence: US)
  Receive Date: 20240411
  Receipt Date: 20240626
  Transmission Date: 20240716
  Serious: Yes (Other)
  Sender: FDA-Public Use
  Company Number: US-PFIZER INC-202400081060

PATIENT
  Age: 38 Year
  Sex: Female

DRUGS (2)
  1. IBRANCE [Suspect]
     Active Substance: PALBOCICLIB
     Dosage: 125 MG
     Dates: start: 20240401
  2. IBRANCE [Suspect]
     Active Substance: PALBOCICLIB
     Dosage: 125MG, CYLIC (1 PO (PER ORAL) FOR 21 DAYS WITH 7 DAYS OFF)
     Route: 048
     Dates: start: 20240403

REACTIONS (3)
  - Rash [Not Recovered/Not Resolved]
  - Nausea [Recovered/Resolved]
  - Eczema [Unknown]

NARRATIVE: CASE EVENT DATE: 20240101
